FAERS Safety Report 7715057-X (Version None)
Quarter: 2011Q3

REPORT INFORMATION
  Report Type: 
  Country: None (occurrence: None)
  Receive Date: 20110810
  Receipt Date: 20110415
  Transmission Date: 20111222
  Serious: No
  Sender: FDA-Public Use
  Company Number: 1000020189

PATIENT
  Age: 57 Year
  Sex: Female

DRUGS (18)
  1. DIOVAN HCT (CO-DIOVAN) (CO-DIOVAN) [Concomitant]
  2. DOCUSATE (DOCUSATE) (DOCUSATE) [Concomitant]
  3. ASA (ACETYLSALICYLIC ACID) (ACETYLSALICYLIC ACID) [Concomitant]
  4. CALCIUM (CALCIUM) (CALCIUM) [Concomitant]
  5. SAVELLA [Suspect]
     Indication: PAIN
     Dosage: SEE IMAGE
     Route: 048
     Dates: start: 20110211, end: 20110211
  6. SAVELLA [Suspect]
     Indication: PAIN
     Dosage: SEE IMAGE
     Route: 048
     Dates: start: 20110218
  7. SAVELLA [Suspect]
     Indication: PAIN
     Dosage: SEE IMAGE
     Route: 048
     Dates: start: 20110212, end: 20110213
  8. SAVELLA [Suspect]
     Indication: PAIN
     Dosage: SEE IMAGE
     Route: 048
     Dates: start: 20110214, end: 20110217
  9. MIRALAX (MACROGOL) (MACROGOL) [Concomitant]
  10. TIMOPTIC (TIMOLOL MALEATE) (EYE DROPS) (TIMOLOL MALEATE) [Concomitant]
  11. GABAPENTIN (GABAPENTIN) (GABAPENTIN) [Concomitant]
  12. PREDNISONE [Concomitant]
  13. OXYCONTIN (OXYCODONE HYDROCHLORIDE) (OXYCODONE HYDROCHLORIDE) [Concomitant]
  14. VITAMIN C (VITAMIN C) (VITAMIN C) [Concomitant]
  15. PANTOPRAZOLE (PANTOPRAZOLE) (PANTOPRAZOLE) [Concomitant]
  16. TAMOXEFEN (TAMOXIFEN) (TAMOXIFEN) [Concomitant]
  17. PLAQUENIL (HYDROXYCHLOROQUINE) (HYDROXYCHLOROQUINE) [Concomitant]
  18. MVI (MVI) (MVI) [Concomitant]

REACTIONS (7)
  - CONSTIPATION [None]
  - MIGRAINE [None]
  - HOT FLUSH [None]
  - VISUAL IMPAIRMENT [None]
  - HEADACHE [None]
  - VITREOUS FLOATERS [None]
  - INTRAOCULAR PRESSURE INCREASED [None]
